FAERS Safety Report 9157039 (Version 1)
Quarter: 2013Q1

REPORT INFORMATION
  Report Type: Spontaneous
  Country: ZA (occurrence: ZA)
  Receive Date: 20130312
  Receipt Date: 20130312
  Transmission Date: 20140127
  Serious: Yes (Death)
  Sender: FDA-Public Use
  Company Number: ZA-MYLANLABS-2013S1004891

PATIENT
  Sex: 0

DRUGS (1)
  1. NEVIRAPINE [Suspect]
     Indication: HIV INFECTION
     Dosage: INITIALLY 200MG DAILY
     Route: 064

REACTIONS (8)
  - Stillbirth [Fatal]
  - Exposure during pregnancy [Fatal]
  - Hypotension [None]
  - Oliguria [None]
  - Acute hepatic failure [None]
  - Dyspnoea [None]
  - Hepatic encephalopathy [None]
  - International normalised ratio increased [None]
